APPROVED DRUG PRODUCT: NALLPEN IN PLASTIC CONTAINER
Active Ingredient: NAFCILLIN SODIUM
Strength: EQ 20MG BASE/ML
Dosage Form/Route: INJECTABLE;INJECTION
Application: N050655 | Product #001
Applicant: BAXTER HEALTHCARE CORP
Approved: Oct 31, 1989 | RLD: Yes | RS: Yes | Type: RX